FAERS Safety Report 13418078 (Version 1)
Quarter: 2017Q2

REPORT INFORMATION
  Report Type: Spontaneous
  Country: IE (occurrence: IE)
  Receive Date: 20170407
  Receipt Date: 20170407
  Transmission Date: 20170830
  Serious: Yes (Hospitalization)
  Sender: FDA-Public Use
  Company Number: IE-BAXTER-2017BAX013423

PATIENT
  Age: 6 Year
  Sex: Female
  Weight: 19 kg

DRUGS (9)
  1. WATER FOR INJECTION [Suspect]
     Active Substance: WATER
     Dosage: RECEIVED AGAIN AT NIGHT
     Route: 065
     Dates: start: 20170321
  2. DESFERAL [Suspect]
     Active Substance: DEFEROXAMINE MESYLATE
     Indication: PRODUCT USED FOR UNKNOWN INDICATION
     Dosage: USUALLY RECEIVES AT HOME
     Route: 065
  3. WATER FOR INJECTION [Suspect]
     Active Substance: WATER
     Dosage: STARTED APPROXIMATELY AT 11 PM IN THE HOSPITAL
     Route: 065
     Dates: start: 20170320, end: 20170321
  4. SODIUM CHLORIDE INTRAVENOUS INFUSION BP 0.9% W/V [Suspect]
     Active Substance: SODIUM CHLORIDE
     Dosage: RECEIVED AGAIN AT NIGHT
     Route: 065
     Dates: start: 20170321
  5. SODIUM CHLORIDE INTRAVENOUS INFUSION BP 0.9% W/V [Suspect]
     Active Substance: SODIUM CHLORIDE
     Dosage: STARTED APPROXIMATELY AT 11 PM IN THE HOSPITAL, SOME AMOUNT OF 52ML
     Route: 065
     Dates: start: 20170320, end: 20170321
  6. WATER FOR INJECTION [Suspect]
     Active Substance: WATER
     Indication: MEDICATION DILUTION
     Dosage: USUALLY RECEIVES AT HOME
     Route: 065
  7. DESFERAL [Suspect]
     Active Substance: DEFEROXAMINE MESYLATE
     Dosage: STARTED APPROXIMATELY AT 11 PM IN THE HOSPITAL, RECEIVED SOME AMOUNT OF 750 MG
     Route: 065
     Dates: start: 20170320, end: 20170321
  8. DESFERAL [Suspect]
     Active Substance: DEFEROXAMINE MESYLATE
     Dosage: RECEIVED AGAIN AT NIGHT
     Route: 065
     Dates: start: 20170321
  9. SODIUM CHLORIDE INTRAVENOUS INFUSION BP 0.9% W/V [Suspect]
     Active Substance: SODIUM CHLORIDE
     Indication: MEDICATION DILUTION
     Dosage: USUALLY RECEIVES AT HOME
     Route: 065

REACTIONS (2)
  - Underdose [Unknown]
  - Malaise [Unknown]

NARRATIVE: CASE EVENT DATE: 20170321
